FAERS Safety Report 5165320-4 (Version None)
Quarter: 2006Q4

REPORT INFORMATION
  Report Type: 
  Country: None (occurrence: None)
  Receive Date: 20061206
  Receipt Date: 20061121
  Transmission Date: 20070319
  Serious: Yes (Other)
  Sender: FDA-Public Use
  Company Number: PHBS2006JP18239

PATIENT
  Age: 77 Year
  Sex: Male

DRUGS (5)
  1. BUFFERIN (NCH) [Suspect]
     Route: 048
  2. PANALDINE [Suspect]
     Route: 048
  3. OMEPRAL [Suspect]
     Route: 048
  4. EUGLUCON [Suspect]
     Indication: DIABETES MELLITUS
     Route: 048
  5. DIOVAN [Suspect]
     Indication: HYPERTENSION
     Dosage: 80 MG/DAY
     Route: 048

REACTIONS (5)
  - ACUTE MYOCARDIAL INFARCTION [None]
  - CATHETERISATION CARDIAC [None]
  - CHEST X-RAY ABNORMAL [None]
  - INTERSTITIAL LUNG DISEASE [None]
  - PYREXIA [None]
